FAERS Safety Report 18768565 (Version 2)
Quarter: 2021Q1

REPORT INFORMATION
  Report Type: Report from Study
  Country: US (occurrence: US)
  Receive Date: 20210121
  Receipt Date: 20210128
  Transmission Date: 20210419
  Serious: Yes (Hospitalization)
  Sender: FDA-Public Use
  Company Number: US-PFIZER INC-2021030912

PATIENT
  Age: 69 Year
  Sex: Male
  Weight: 92.52 kg

DRUGS (22)
  1. METFORMIN [Concomitant]
     Active Substance: METFORMIN HYDROCHLORIDE
     Dosage: 1000 MG, 2X/DAY (500MG TABLET 2XDAILY)
     Dates: start: 201911
  2. CHLORTHALIDONE. [Concomitant]
     Active Substance: CHLORTHALIDONE
     Dosage: 25 MG, 1X/DAY (25MG TABLET 1X DAILY)
     Dates: start: 202005
  3. MIRALAX [Concomitant]
     Active Substance: POLYETHYLENE GLYCOL 3350
     Indication: CONSTIPATION
     Dosage: 17 G, 1X/DAY
     Dates: start: 20201207
  4. BMS?936558 [Suspect]
     Active Substance: NIVOLUMAB
     Indication: MALIGNANT MELANOMA
     Dosage: 480 MG, CYCLIC (Q 28 DAYS)
     Route: 042
     Dates: start: 20201118, end: 20201217
  5. METOPROLOL. [Concomitant]
     Active Substance: METOPROLOL
     Dosage: 50 MG, 1X/DAY (ER 50 MG TABLET 1X DAILY)
     Dates: start: 200101
  6. OMEGA?3 FISH OIL [Concomitant]
     Active Substance: FISH OIL\OMEGA-3 FATTY ACIDS
     Dosage: 350 MG, 1X/DAY (350MG TABLET 1X DAILY)
     Dates: start: 201002
  7. ATIVAN [Concomitant]
     Active Substance: LORAZEPAM
     Dosage: UNK UNK, PRN
     Dates: start: 202010
  8. OLANZAPINE. [Concomitant]
     Active Substance: OLANZAPINE
     Dosage: 5 MG, 1X/DAY (5MG TABLET 1XDAILY BEDTIME)
     Dates: start: 20201207
  9. ASPIRIN [ACETYLSALICYLIC ACID] [Concomitant]
     Active Substance: ASPIRIN
     Dosage: 81 MG, 1X/DAY (1X DAILY)
     Dates: start: 200101
  10. FISH OIL [Concomitant]
     Active Substance: FISH OIL
     Dosage: 300 MG, 1X/DAY (1X DAILY)
     Dates: start: 201002
  11. Q10 [Concomitant]
     Active Substance: DIETARY SUPPLEMENT\UBIDECARENONE
     Dosage: 100 MG, 1X/DAY (1X DAILY)
     Dates: start: 201002
  12. AVASTIN [Concomitant]
     Active Substance: BEVACIZUMAB
     Dosage: UNK
     Route: 031
     Dates: start: 201905
  13. MUCINEX [Concomitant]
     Active Substance: GUAIFENESIN
     Dosage: UNK, Q12 HRS
     Dates: start: 202007
  14. LIPITOR [Concomitant]
     Active Substance: ATORVASTATIN CALCIUM
     Dosage: 80 MG, 1X/DAY (1X TABLET DAILY)
     Dates: start: 200101
  15. ZOFRAN [Concomitant]
     Active Substance: ONDANSETRON HYDROCHLORIDE
     Dosage: UNK, Q8 HRS PRN
     Dates: start: 202011
  16. OMEPRAZOLE. [Concomitant]
     Active Substance: OMEPRAZOLE
     Dosage: 20 MG, 1X/DAY (20MG TABLET 1XDAILY)
     Dates: start: 20201218
  17. HAWTHORN BERRY [Concomitant]
     Dosage: 565 MG, 1X/DAY (1X DAILY)
     Dates: start: 201002
  18. TALAZOPARIB. [Suspect]
     Active Substance: TALAZOPARIB
     Indication: MALIGNANT MELANOMA
     Dosage: 1 MG, DAILY
     Route: 048
     Dates: start: 20201118, end: 20210112
  19. ADVIL [Concomitant]
     Active Substance: IBUPROFEN
     Indication: BACK PAIN
     Dosage: 400 MG, Q6 HRS PRN
     Dates: start: 202011
  20. REMERON [Concomitant]
     Active Substance: MIRTAZAPINE
     Indication: INSOMNIA
     Dosage: 7.5 MG, AT BEDTIME PRN
     Dates: start: 20210107
  21. ASCORBIC ACID. [Concomitant]
     Active Substance: ASCORBIC ACID
     Dosage: 1000 MG, 1X/DAY (1X DAILY)
     Dates: start: 201002
  22. THEANINE [Concomitant]
     Active Substance: THEANINE
     Dosage: 200 MG, 1X/DAY (1X DAILY)
     Dates: start: 201002

REACTIONS (2)
  - Blood bilirubin increased [Recovering/Resolving]
  - Hepatitis [Recovering/Resolving]

NARRATIVE: CASE EVENT DATE: 20210114
